FAERS Safety Report 5200655-8 (Version None)
Quarter: 2006Q4

REPORT INFORMATION
  Report Type: 
  Country: None (occurrence: None)
  Receive Date: 20061016
  Receipt Date: 20060626
  Transmission Date: 20070319
  Serious: No
  Sender: FDA-Public Use
  Company Number: 2006SP002541

PATIENT
  Age: 77 Year
  Sex: Female
  Weight: 61.2356 kg

DRUGS (13)
  1. LUNESTA [Suspect]
     Indication: INSOMNIA
     Dosage: SEE IMAGE
     Route: 048
     Dates: start: 20060601, end: 20060601
  2. LUNESTA [Suspect]
     Indication: INSOMNIA
     Dosage: SEE IMAGE
     Route: 048
     Dates: start: 20060625, end: 20060625
  3. HALCION [Suspect]
     Indication: INSOMNIA
     Dosage: SEE IMAGE
     Route: 048
     Dates: start: 20040101, end: 20060601
  4. HALCION [Suspect]
     Indication: INSOMNIA
     Dosage: SEE IMAGE
     Route: 048
     Dates: start: 20060601, end: 20060624
  5. AVAPRO [Concomitant]
  6. AVAPRO [Concomitant]
  7. TIKOSYN [Concomitant]
  8. VYTORIN [Concomitant]
  9. PREVACID [Concomitant]
  10. IMDUR [Concomitant]
  11. LIBRAX [Concomitant]
  12. METOPROLOL SUCCINATE [Concomitant]
  13. RESTORIL [Concomitant]

REACTIONS (1)
  - HEADACHE [None]
